FAERS Safety Report 8058593-1 (Version None)
Quarter: 2012Q1

REPORT INFORMATION
  Report Type: 
  Country: None (occurrence: None)
  Receive Date: 20120120
  Receipt Date: 20120113
  Transmission Date: 20120608
  Serious: Yes (Hospitalization)
  Sender: FDA-Public Use
  Company Number: JP-JNJFOC-20120107691

PATIENT
  Age: 81 Year
  Sex: Male

DRUGS (9)
  1. SEDIEL [Concomitant]
     Route: 065
  2. MUCODYNE [Concomitant]
     Route: 065
  3. ANTIHYPERTENSION MEDICATION [Concomitant]
     Route: 065
  4. EPADEL [Concomitant]
     Route: 065
  5. URALYT-U [Concomitant]
     Route: 065
  6. CARVEDILOL [Concomitant]
     Route: 065
  7. BEZATOL SR [Concomitant]
     Route: 065
  8. URINORM [Concomitant]
     Route: 065
  9. LEVOFLOXACIN [Suspect]
     Indication: PNEUMONIA
     Route: 041
     Dates: start: 20111230, end: 20111231

REACTIONS (3)
  - HYPOTENSION [None]
  - ATRIAL FIBRILLATION [None]
  - DIZZINESS [None]
